FAERS Safety Report 9898201 (Version 1)
Quarter: 2014Q1

REPORT INFORMATION
  Report Type: Spontaneous
  Country: DE (occurrence: DE)
  Receive Date: 20140214
  Receipt Date: 20140214
  Transmission Date: 20141002
  Serious: Yes (Hospitalization)
  Sender: FDA-Public Use
  Company Number: DE-TEVA-461819GER

PATIENT
  Age: 65 Year
  Sex: Female
  Weight: 76 kg

DRUGS (1)
  1. OXALIPLATIN - GRY [Suspect]
     Indication: COLON CANCER
     Route: 042

REACTIONS (2)
  - Oxygen saturation decreased [Unknown]
  - Tracheal obstruction [Unknown]
